FAERS Safety Report 14813269 (Version 1)
Quarter: 2018Q2

REPORT INFORMATION
  Report Type: Report from Study
  Country: CA (occurrence: CA)
  Receive Date: 20180426
  Receipt Date: 20180426
  Transmission Date: 20180711
  Serious: Yes (Other)
  Sender: FDA-Public Use
  Company Number: CA-TEVA-2018-CA-884931

PATIENT
  Sex: Male

DRUGS (2)
  1. GUANFACINE. [Suspect]
     Active Substance: GUANFACINE
     Indication: ATTENTION DEFICIT/HYPERACTIVITY DISORDER
     Dosage: FORMULATION: EXTENDED RELEASE
     Route: 065
  2. ATOMOXETINE. [Suspect]
     Active Substance: ATOMOXETINE HYDROCHLORIDE
     Indication: ATTENTION DEFICIT/HYPERACTIVITY DISORDER
     Route: 065

REACTIONS (4)
  - Weight decreased [Unknown]
  - Agitation [Unknown]
  - Emotional disorder [Unknown]
  - Gastrointestinal disorder [Unknown]
